FAERS Safety Report 11379068 (Version 1)
Quarter: 2015Q3

REPORT INFORMATION
  Report Type: Spontaneous
  Country: CO (occurrence: None)
  Receive Date: 20150812
  Receipt Date: 20150812
  Transmission Date: 20151125
  Serious: Yes (Hospitalization, Other)
  Sender: FDA-Public Use
  Company Number: 2015RR-100775

PATIENT
  Sex: Male

DRUGS (2)
  1. PARACETAMOL (PARACETAMOL) UNKNOWN, UNKNOWN [Suspect]
     Active Substance: ACETAMINOPHEN
     Indication: PAIN
     Route: 064
  2. PARACETAMOL (PARACETAMOL) UNKNOWN, UNKNOWN [Suspect]
     Active Substance: ACETAMINOPHEN
     Indication: INFLAMMATION
     Route: 064

REACTIONS (5)
  - Ventricular hypertrophy [None]
  - Pulmonary hypertension [None]
  - Patent ductus arteriosus [None]
  - Maternal drugs affecting foetus [None]
  - Foetal arrhythmia [None]
